FAERS Safety Report 11852242 (Version 2)
Quarter: 2016Q1

REPORT INFORMATION
  Report Type: Report from Study
  Country: TW (occurrence: TW)
  Receive Date: 20151218
  Receipt Date: 20160106
  Transmission Date: 20160526
  Serious: Yes (Other)
  Sender: FDA-Public Use
  Company Number: TW-ABBVIE-15K-153-1500859-00

PATIENT
  Age: 40 Year
  Sex: Female
  Weight: 48.5 kg

DRUGS (4)
  1. PLAQUENIL [Concomitant]
     Active Substance: HYDROXYCHLOROQUINE SULFATE
     Indication: RHEUMATOID ARTHRITIS
     Route: 048
     Dates: start: 20131127, end: 20151111
  2. HUMIRA [Suspect]
     Active Substance: ADALIMUMAB
     Indication: RHEUMATOID ARTHRITIS
     Route: 058
     Dates: start: 20080625, end: 20151111
  3. METHOTREXATE [Concomitant]
     Active Substance: METHOTREXATE
     Indication: RHEUMATOID ARTHRITIS
     Route: 048
     Dates: start: 20001229, end: 20151111
  4. SALAGEN [Concomitant]
     Active Substance: PILOCARPINE HYDROCHLORIDE
     Indication: SJOGREN^S SYNDROME
     Dates: start: 20140319, end: 20151111

REACTIONS (9)
  - Gallbladder oedema [Unknown]
  - Urinary tract infection [Unknown]
  - Jaundice [Unknown]
  - Ascites [Unknown]
  - Nephropathy [Unknown]
  - Gallbladder disorder [Unknown]
  - Neoplasm [Unknown]
  - Hepatic steatosis [Unknown]
  - Prothrombin level increased [Unknown]

NARRATIVE: CASE EVENT DATE: 20140822
